FAERS Safety Report 13608316 (Version 2)
Quarter: 2017Q2

REPORT INFORMATION
  Report Type: Spontaneous
  Country: FR (occurrence: FR)
  Receive Date: 20170602
  Receipt Date: 20170616
  Transmission Date: 20170830
  Serious: Yes (Other)
  Sender: FDA-Public Use
  Company Number: FR-PFIZER INC-2017240456

PATIENT
  Age: 81 Year
  Sex: Male

DRUGS (7)
  1. TRIATEC [Suspect]
     Active Substance: RAMIPRIL
     Dosage: 2.5 MG, DAILY
     Route: 048
     Dates: end: 20150708
  2. IMOVANE [Suspect]
     Active Substance: ZOPICLONE
     Dosage: UNK
     Route: 048
     Dates: end: 20150708
  3. IMOVANE [Suspect]
     Active Substance: ZOPICLONE
     Dosage: UNK
     Route: 048
  4. LASILIX [Suspect]
     Active Substance: FUROSEMIDE
     Dosage: 125 MG, 2X/DAY
     Route: 048
  5. LASILIX [Suspect]
     Active Substance: FUROSEMIDE
     Dosage: 60 MG, 2X/DAY (40 MG IN THE MORNING AND 20 MG AT NOON)
     Route: 048
  6. LUMIGAN [Suspect]
     Active Substance: BIMATOPROST
     Dosage: 1 GTT, UNK (EVERY HOUR)
     Route: 047
     Dates: end: 20150708
  7. LUMIGAN [Suspect]
     Active Substance: BIMATOPROST
     Dosage: UNK
     Route: 047

REACTIONS (6)
  - Fall [Recovered/Resolved]
  - Subdural haematoma [Unknown]
  - Excoriation [Unknown]
  - Rhabdomyolysis [Unknown]
  - Hypothermia [Unknown]
  - Head injury [Unknown]

NARRATIVE: CASE EVENT DATE: 20150708
